FAERS Safety Report 10172774 (Version 2)
Quarter: 2014Q2

REPORT INFORMATION
  Report Type: Spontaneous
  Country: US (occurrence: None)
  Receive Date: 20140416
  Receipt Date: 20140604
  Transmission Date: 20141212
  Serious: No
  Sender: FDA-Public Use
  Company Number: 163-POMAL-13124207

PATIENT
  Age: 65 Year
  Sex: Female
  Weight: 54 kg

DRUGS (5)
  1. POMALYST [Suspect]
     Indication: PLASMA CELL MYELOMA
     Dosage: 2 MG, 21 IN 28 D, PO
     Route: 048
     Dates: start: 20130301
  2. ZITHROMAX (AZITHROMYCIN) [Concomitant]
  3. DEXAMETHASONE [Concomitant]
  4. VICKS DAYQUIL (VICKS FORMULA 44M) [Concomitant]
  5. VICKS NYQUIL COLD + FLU (NITE-TIME COLD MEDICINE) [Concomitant]

REACTIONS (3)
  - Drug dose omission [None]
  - No adverse event [None]
  - Drug intolerance [None]
